FAERS Safety Report 4330694-0 (Version None)
Quarter: 2004Q2

REPORT INFORMATION
  Report Type: 
  Country: None (occurrence: None)
  Receive Date: 20040401
  Receipt Date: 20040401
  Transmission Date: 20050107
  Serious: No
  Sender: FDA-Public Use
  Company Number: None

PATIENT
  Age: 78 Year
  Sex: Male
  Weight: 79.8 kg

DRUGS (38)
  1. LEVOFLOXACIN [Suspect]
     Indication: INTESTINAL PERFORATION
     Dosage: 250 MG ORAL
     Route: 048
     Dates: start: 20031120, end: 20041128
  2. CEFEPIME [Suspect]
     Dosage: 1 GM IV
     Route: 042
     Dates: start: 20031128, end: 20031205
  3. CLOPIDOGREL BISULFATE [Concomitant]
  4. ATENOLOL [Concomitant]
  5. HYDROCHLOROTHIAZIDE [Concomitant]
  6. LISINOPRIL [Concomitant]
  7. RABEPRAZOLE NA [Concomitant]
  8. SIMVASTATIN [Concomitant]
  9. TERAZOSIN HCL [Concomitant]
  10. ASPIRN [Concomitant]
  11. DOCUSATE NA [Concomitant]
  12. PSYLLIUM [Concomitant]
  13. FERROUS SO04 [Concomitant]
  14. ARTIFICIAL TEARS [Concomitant]
  15. SILDENAFIL CITRATE [Concomitant]
  16. FUROSEMIDE [Concomitant]
  17. TERAZOSIN HCL [Concomitant]
  18. AMIODARONE HCL [Concomitant]
  19. ALBUTEROL/IPRATROPIUM INHL [Concomitant]
  20. POTASSIUM CHLORIDE [Concomitant]
  21. ENOXAPARIN SODIUM [Concomitant]
  22. MEGESTROL [Concomitant]
  23. ACETAMINOPHEN [Concomitant]
  24. KAOLIN/PECTIN [Concomitant]
  25. LOPERAMIDE HCL [Concomitant]
  26. LACTULOSE [Concomitant]
  27. MIRTAZAPINE [Concomitant]
  28. RANITIDINE [Concomitant]
  29. ALOH/MGOH/SIMETH [Concomitant]
  30. METOPROLOL TARTRATE [Concomitant]
  31. SODIUM CHLORIDE NASAL [Concomitant]
  32. DIPHENHYDRAMINE ELIXIR [Concomitant]
  33. MORPHINE SULFATE [Concomitant]
  34. METRONIDAZOLE [Concomitant]
  35. HUMULIN R [Concomitant]
  36. ONDANSETRON HCL [Concomitant]
  37. FLUCONAZOLE [Concomitant]
  38. AMIODARONE HCL [Concomitant]

REACTIONS (1)
  - CLOSTRIDIAL INFECTION [None]
